FAERS Safety Report 5087832-4 (Version None)
Quarter: 2006Q3

REPORT INFORMATION
  Report Type: 
  Country: None (occurrence: None)
  Receive Date: 20060824
  Receipt Date: 20060126
  Transmission Date: 20061208
  Serious: Yes (Life-Threatening, Other)
  Sender: FDA-Public Use
  Company Number: 2006CG00198

PATIENT
  Age: 812 Month
  Sex: Male
  Weight: 69 kg

DRUGS (4)
  1. ZESTRIL [Suspect]
     Indication: HYPERTENSION
     Route: 048
     Dates: end: 20060208
  2. CARDENSIEL [Suspect]
     Indication: HYPERTENSION
     Route: 048
     Dates: start: 20051205, end: 20060208
  3. TAHOR [Suspect]
     Route: 048
     Dates: start: 20051201, end: 20060208
  4. PLAVIX [Concomitant]
     Indication: CARDIOVASCULAR EVENT PROPHYLAXIS
     Route: 048
     Dates: start: 20040101

REACTIONS (5)
  - ANXIETY [None]
  - COGNITIVE DISORDER [None]
  - MAJOR DEPRESSION [None]
  - MOTOR DYSFUNCTION [None]
  - SUICIDAL IDEATION [None]
